FAERS Safety Report 8771627 (Version 2)
Quarter: 2012Q4

REPORT INFORMATION
  Report Type: 
  Country: US (occurrence: US)
  Receive Date: 20120906
  Receipt Date: 20120924
  Transmission Date: 20130627
  Serious: No
  Sender: FDA-Public Use
  Company Number: US-PFIZER INC-2012218634

PATIENT
  Age: 63 Year
  Sex: Female
  Weight: 43.54 kg

DRUGS (15)
  1. CHANTIX [Suspect]
     Indication: SMOKING CESSATION THERAPY
     Dosage: 0.5 mg, daily
     Route: 048
     Dates: start: 20120828
  2. LISINOPRIL [Concomitant]
     Dosage: 5 mg, 2x/day
  3. PRAVASTATIN [Concomitant]
     Indication: BLOOD CHOLESTEROL ABNORMAL
     Dosage: 40 mg, daily
     Dates: start: 201205
  4. PRAVASTATIN [Concomitant]
     Indication: CORONARY ARTERY DISEASE
  5. ECOTRIN [Concomitant]
     Indication: ANTICOAGULANT THERAPY
     Dosage: 325 mg, daily
  6. CLOPIDOGREL [Concomitant]
     Indication: HEART RATE ABNORMAL
     Dosage: 75 mg, daily
  7. METOPROLOL [Concomitant]
     Indication: HYPERTENSION
     Dosage: 50 mg, 2x/day
     Dates: start: 201205
  8. METOPROLOL [Concomitant]
     Indication: CORONARY ARTERY DISEASE
  9. ALBUTEROL SULFATE [Concomitant]
     Dosage: UNK, as needed
  10. SPIRIVA [Concomitant]
     Indication: LUNG DISORDER
     Dosage: UNK, daily
  11. SPIRIVA [Concomitant]
     Indication: RESPIRATORY DISORDER
  12. SYMBICORT [Concomitant]
     Indication: LUNG DISORDER
     Dosage: UNK, 2x/day
  13. SYMBICORT [Concomitant]
     Indication: RESPIRATORY DISORDER
  14. PLAVIX [Concomitant]
     Indication: CORONARY ARTERY DISEASE
     Dosage: UNK
     Dates: start: 201205
  15. NTG [Concomitant]
     Indication: CORONARY ARTERY DISEASE
     Dosage: UNK
     Dates: start: 201205

REACTIONS (1)
  - Nausea [Recovered/Resolved]
